FAERS Safety Report 14350646 (Version 1)
Quarter: 2018Q1

REPORT INFORMATION
  Report Type: Spontaneous
  Country: US (occurrence: US)
  Receive Date: 20180104
  Receipt Date: 20180104
  Transmission Date: 20180509
  Serious: No
  Sender: FDA-Public Use
  Company Number: US-ALLERGAN-1769077US

PATIENT
  Sex: Male

DRUGS (1)
  1. VRAYLAR [Suspect]
     Active Substance: CARIPRAZINE
     Indication: SCHIZOPHRENIA
     Dosage: 1.5 MG, UNK
     Route: 065
     Dates: end: 201710

REACTIONS (2)
  - Musculoskeletal stiffness [Recovered/Resolved]
  - Tardive dyskinesia [Not Recovered/Not Resolved]
